FAERS Safety Report 12610975 (Version 2)
Quarter: 2016Q3

REPORT INFORMATION
  Report Type: Spontaneous
  Country: US (occurrence: US)
  Receive Date: 20160801
  Receipt Date: 20160912
  Transmission Date: 20161109
  Serious: Yes (Other)
  Sender: FDA-Public Use
  Company Number: US-PFIZER INC-2016361975

PATIENT
  Age: 60 Year
  Sex: Male
  Weight: 86.64 kg

DRUGS (4)
  1. CHANTIX [Suspect]
     Active Substance: VARENICLINE TARTRATE
     Indication: SMOKING CESSATION THERAPY
     Dosage: UNK
  2. PROZAC [Concomitant]
     Active Substance: FLUOXETINE HYDROCHLORIDE
     Indication: DEPRESSION
     Dosage: UNK
     Dates: start: 2004
  3. CHANTIX [Suspect]
     Active Substance: VARENICLINE TARTRATE
     Dosage: UNK (RESTART)
  4. LITHIUM. [Concomitant]
     Active Substance: LITHIUM
     Indication: DEPRESSION
     Dosage: UNK
     Dates: start: 2004

REACTIONS (6)
  - Feeling abnormal [Unknown]
  - Suicidal ideation [Unknown]
  - Insomnia [Recovered/Resolved]
  - Hallucination, auditory [Recovered/Resolved]
  - Depression [Unknown]
  - Abnormal dreams [Recovered/Resolved]
